FAERS Safety Report 7200630-8 (Version None)
Quarter: 2010Q4

REPORT INFORMATION
  Report Type: 
  Country: None (occurrence: None)
  Receive Date: 20101228
  Receipt Date: 20101215
  Transmission Date: 20110411
  Serious: Yes (Other)
  Sender: FDA-Public Use
  Company Number: JP-MYLANLABS-2010S1022900

PATIENT
  Sex: Female
  Weight: 3.7 kg

DRUGS (3)
  1. CLARITHROMYCIN [Suspect]
     Indication: C-REACTIVE PROTEIN INCREASED
     Dates: start: 20100730, end: 20100816
  2. RENIVACE [Concomitant]
     Indication: PULMONARY HYPERTENSION
     Route: 048
     Dates: start: 20100608, end: 20100816
  3. RENIVACE [Concomitant]
     Route: 048
     Dates: start: 20100819

REACTIONS (1)
  - RENAL IMPAIRMENT [None]
